FAERS Safety Report 5059459-1 (Version None)
Quarter: 2006Q2

REPORT INFORMATION
  Report Type: 
  Country: None (occurrence: None)
  Receive Date: 20060629
  Receipt Date: 20060310
  Transmission Date: 20061013
  Serious: No
  Sender: FDA-Public Use
  Company Number: PHEH2006US03304

PATIENT
  Age: 59 Year
  Sex: Male

DRUGS (2)
  1. ENABLEX [Suspect]
     Indication: HYPERTONIC BLADDER
     Dosage: 7.5 MG; 15 MG
     Dates: start: 20060201
  2. ENABLEX [Suspect]
     Indication: HYPERTONIC BLADDER
     Dosage: 7.5 MG; 15 MG
     Dates: start: 20060308

REACTIONS (3)
  - DRY MOUTH [None]
  - DRY SKIN [None]
  - ERECTILE DYSFUNCTION [None]
